FAERS Safety Report 15628392 (Version 13)
Quarter: 2020Q2

REPORT INFORMATION
  Report Type: Spontaneous
  Country: US (occurrence: US)
  Receive Date: 20181116
  Receipt Date: 20200605
  Transmission Date: 20200713
  Serious: Yes (Other)
  Sender: FDA-Public Use
  Company Number: US-PFIZER INC-2018460726

PATIENT
  Age: 64 Year
  Sex: Female
  Weight: 86 kg

DRUGS (4)
  1. LYRICA [Suspect]
     Active Substance: PREGABALIN
     Indication: BACK PAIN
     Dosage: 50 MG, 3X/DAY
     Route: 048
  2. PERCOCET [Concomitant]
     Active Substance: ACETAMINOPHEN\OXYCODONE HYDROCHLORIDE
     Indication: PAIN
     Dosage: UNK, 4X/DAY (OXYCODONE HYDROCHLORIDE: 10 MG/PARACETAMOL: 325 MG)
  3. LYRICA [Suspect]
     Active Substance: PREGABALIN
     Indication: PAIN
     Dosage: 50 MG, 2X/DAY
     Route: 048
     Dates: start: 20181017
  4. LYRICA [Suspect]
     Active Substance: PREGABALIN
     Indication: ARTHRITIS
     Dosage: 100 MG, 3X/DAY
     Route: 048

REACTIONS (9)
  - Weight increased [Unknown]
  - Feeling abnormal [Unknown]
  - Therapeutic response unexpected [Unknown]
  - Drug ineffective [Unknown]
  - Weight loss poor [Unknown]
  - Hunger [Unknown]
  - Dizziness [Recovered/Resolved]
  - Feeling hot [Unknown]
  - Exostosis [Unknown]

NARRATIVE: CASE EVENT DATE: 2018
